FAERS Safety Report 5061691-8 (Version None)
Quarter: 2006Q3

REPORT INFORMATION
  Report Type: 
  Country: None (occurrence: None)
  Receive Date: 20060703
  Receipt Date: 20051228
  Transmission Date: 20061208
  Serious: No
  Sender: FDA-Public Use
  Company Number: 2006S1000066

PATIENT
  Age: 13 Year
  Sex: Male

DRUGS (4)
  1. CLOZAPINE [Suspect]
     Indication: SCHIZOAFFECTIVE DISORDER
     Dosage: 100 MG;BID;ORAL
     Route: 048
  2. LAMOTRIGINE [Concomitant]
  3. MIRTAZAPINE [Concomitant]
  4. ERGOCALCIFEROL/ASCORBIC ACID/FOLIC ACID/THIAMINE HYDROCHLORIDE/RETINOL [Concomitant]

REACTIONS (1)
  - GRANULOCYTOPENIA [None]
